FAERS Safety Report 20364337 (Version 1)
Quarter: 2022Q1

REPORT INFORMATION
  Report Type: Spontaneous
  Country: US (occurrence: None)
  Receive Date: 20220121
  Receipt Date: 20220121
  Transmission Date: 20220423
  Serious: Yes (Life-Threatening)
  Sender: FDA-Public Use
  Company Number: None

PATIENT
  Age: 76 Year
  Sex: Male

DRUGS (1)
  1. IRON DEXTRAN [Suspect]
     Active Substance: IRON DEXTRAN
     Indication: Iron deficiency anaemia
     Dates: start: 20191018, end: 20191018

REACTIONS (6)
  - Unresponsive to stimuli [None]
  - Eye movement disorder [None]
  - Urinary incontinence [None]
  - Infusion related reaction [None]
  - Moaning [None]
  - Anaphylactic reaction [None]

NARRATIVE: CASE EVENT DATE: 20191018
